FAERS Safety Report 21777725 (Version 1)
Quarter: 2022Q4

REPORT INFORMATION
  Report Type: Spontaneous
  Country: CA (occurrence: CA)
  Receive Date: 20221226
  Receipt Date: 20221226
  Transmission Date: 20230112
  Serious: Yes (Hospitalization, Other)
  Sender: FDA-Public Use
  Company Number: CA-CELLTRION INC.-2022CA021636

PATIENT

DRUGS (11)
  1. INFLECTRA [Suspect]
     Active Substance: INFLIXIMAB-DYYB
     Indication: Crohn^s disease
     Dosage: 10 MG/KG, EVERY 4 WEEKS
     Route: 042
     Dates: start: 2017
  2. INFLECTRA [Suspect]
     Active Substance: INFLIXIMAB-DYYB
     Dosage: 10 MG/KG, EVERY 4 WEEKS
     Route: 042
     Dates: start: 20200620
  3. INFLECTRA [Suspect]
     Active Substance: INFLIXIMAB-DYYB
     Dosage: 10 MG/KG, EVERY 4 WEEKS
     Route: 042
     Dates: start: 20220720
  4. AZATHIOPRINE [Concomitant]
     Active Substance: AZATHIOPRINE
     Indication: Inflammatory bowel disease
     Dosage: 100 MG/DL
     Dates: start: 20210419
  5. AZATHIOPRINE [Concomitant]
     Active Substance: AZATHIOPRINE
     Dosage: 100 MG
     Dates: start: 20220710
  6. THIAMINE HYDROCHLORIDE [Concomitant]
     Active Substance: THIAMINE HYDROCHLORIDE
     Dosage: UNK
  7. COVID-19 vaccine [Concomitant]
     Indication: COVID-19 immunisation
     Dosage: DOSE 1, SINGLE
  8. COVID-19 vaccine [Concomitant]
     Dosage: DOSE 2, SINGLE
  9. COVID-19 vaccine [Concomitant]
     Dosage: DOSE 3, SINGLE
     Dates: start: 20211230, end: 20211230
  10. INFLIXIMAB [Concomitant]
     Active Substance: INFLIXIMAB
     Dosage: EVERY 4 WEEKS
  11. VIT D [VITAMIN D NOS] [Concomitant]
     Dosage: UNK

REACTIONS (13)
  - Pneumonia [Unknown]
  - Fistula [Unknown]
  - Condition aggravated [Unknown]
  - Haemorrhage [Unknown]
  - Abscess [Unknown]
  - Drug ineffective [Unknown]
  - Off label use [Unknown]
  - COVID-19 [Unknown]
  - Fatigue [Unknown]
  - Eczema [Unknown]
  - Abdominal pain [Unknown]
  - Seborrhoeic dermatitis [Unknown]
  - Alopecia [Unknown]

NARRATIVE: CASE EVENT DATE: 20170101
